FAERS Safety Report 4996258-0 (Version None)
Quarter: 2006Q2

REPORT INFORMATION
  Report Type: 
  Country: None (occurrence: None)
  Receive Date: 20060505
  Receipt Date: 20060420
  Transmission Date: 20061013
  Serious: Yes (Other)
  Sender: FDA-Public Use
  Company Number: PHBS2006IT04468

PATIENT
  Sex: Female

DRUGS (2)
  1. BACLOFEN [Suspect]
     Dosage: 45 MG/DAY, ORAL
     Route: 048
  2. TRAMADOL HCL [Suspect]
     Dosage: 100 MG/DAY

REACTIONS (3)
  - CONVULSION [None]
  - PYREXIA [None]
  - URINARY TRACT INFECTION [None]
